FAERS Safety Report 23470830 (Version 1)
Quarter: 2024Q1

REPORT INFORMATION
  Report Type: Report from Study
  Country: KR (occurrence: KR)
  Receive Date: 20240202
  Receipt Date: 20240202
  Transmission Date: 20240410
  Serious: Yes (Other)
  Sender: FDA-Public Use
  Company Number: KR-ANTENGENE-20240102269

PATIENT
  Age: 72 Year
  Sex: Male

DRUGS (4)
  1. SELINEXOR [Suspect]
     Active Substance: SELINEXOR
     Indication: Plasma cell myeloma
     Dosage: 80 MG, 2X/WEEK
     Route: 048
     Dates: start: 20230605, end: 20230620
  2. SULFAMETHOXAZOLE\TRIMETHOPRIM [Concomitant]
     Active Substance: SULFAMETHOXAZOLE\TRIMETHOPRIM
     Indication: Prophylaxis
     Dosage: 400 MG, QD
     Route: 048
     Dates: start: 20230520
  3. NEUPOGEN [Concomitant]
     Active Substance: FILGRASTIM
     Dosage: 300 UG, QD
     Route: 058
     Dates: start: 20230610
  4. MAXIPIME BORYUNG [Concomitant]
     Dosage: 2 G
     Route: 042
     Dates: start: 20230612

REACTIONS (2)
  - Tumour lysis syndrome [Recovered/Resolved]
  - Parainfluenzae virus infection [Unknown]

NARRATIVE: CASE EVENT DATE: 20230606
